FAERS Safety Report 8088558-5 (Version None)
Quarter: 2012Q1

REPORT INFORMATION
  Report Type: 
  Country: None (occurrence: None)
  Receive Date: 20120128
  Receipt Date: 20110412
  Transmission Date: 20120608
  Serious: No
  Sender: FDA-Public Use
  Company Number: US-ABBOTT-11P-163-0717402-00

PATIENT
  Sex: Female
  Weight: 75.818 kg

DRUGS (5)
  1. ATENOLOL W/HYDROCHLOROTHIAZIDE [Concomitant]
     Indication: BLOOD PRESSURE INCREASED
     Dosage: 50/25
  2. FOLIC ACID [Concomitant]
     Indication: VITAMIN SUPPLEMENTATION
     Route: 048
  3. HUMIRA [Suspect]
     Dates: start: 20110129, end: 20110201
  4. HUMIRA [Suspect]
     Indication: RHEUMATOID ARTHRITIS
     Route: 058
     Dates: start: 20050101
  5. PREDNISONE TAB [Concomitant]
     Dosage: TAPER
     Route: 048

REACTIONS (9)
  - SINUSITIS [None]
  - PRODUCTIVE COUGH [None]
  - ASTHENIA [None]
  - RHEUMATOID ARTHRITIS [None]
  - DERMATITIS [None]
  - SINUS OPERATION [None]
  - DRUG INEFFECTIVE [None]
  - FATIGUE [None]
  - HERPES ZOSTER [None]
